FAERS Safety Report 4505226-4 (Version None)
Quarter: 2004Q4

REPORT INFORMATION
  Report Type: 
  Country: None (occurrence: None)
  Receive Date: 20041118
  Receipt Date: 20041118
  Transmission Date: 20050328
  Serious: Yes (Other)
  Sender: FDA-Public Use
  Company Number: None

PATIENT
  Age: 42 Year
  Sex: Male
  Weight: 61.9 kg

DRUGS (1)
  1. NICOTROL [Suspect]
     Indication: TOBACCO WITHDRAWAL SYMPTOMS
     Dosage: 14 MG TOP QD
     Route: 061

REACTIONS (2)
  - APPLICATION SITE PAIN [None]
  - ARTHRALGIA [None]
